FAERS Safety Report 14682566 (Version 1)
Quarter: 2018Q1

REPORT INFORMATION
  Report Type: Report from Study
  Country: US (occurrence: US)
  Receive Date: 20180327
  Receipt Date: 20180327
  Transmission Date: 20180509
  Serious: Yes (Death, Other)
  Sender: FDA-Public Use
  Company Number: US-ROCHE-2094337

PATIENT

DRUGS (4)
  1. CAPECITABINE. [Suspect]
     Active Substance: CAPECITABINE
     Indication: RECTAL CANCER
     Route: 048
  2. OXALIPLATIN. [Suspect]
     Active Substance: OXALIPLATIN
     Indication: RECTAL CANCER
     Dosage: ON DAYS 1, 8, 15, 22, AND 29 OF THE FIRST CYCLE AND DAYS 1, 8, 22, AND 29 OF THE SECOND CYCLE
     Route: 042
  3. CETUXIMAB. [Suspect]
     Active Substance: CETUXIMAB
     Dosage: ON DAYS 8, 15, 22, AND 29 OF CYCLE 1 AND DAYS 1, 8, 15, 22, AND 29 OF CYCLE 2.
     Route: 042
  4. CETUXIMAB. [Suspect]
     Active Substance: CETUXIMAB
     Indication: RECTAL CANCER
     Dosage: LOADING DOSE ON DAY 1
     Route: 042

REACTIONS (4)
  - Dehydration [Unknown]
  - Diarrhoea [Unknown]
  - Acidosis [Unknown]
  - Multiple organ dysfunction syndrome [Fatal]
